FAERS Safety Report 12493611 (Version 5)
Quarter: 2016Q4

REPORT INFORMATION
  Report Type: Spontaneous
  Country: BR (occurrence: BR)
  Receive Date: 20160623
  Receipt Date: 20161021
  Transmission Date: 20170207
  Serious: Yes (Other)
  Sender: FDA-Public Use
  Company Number: BR-REGENERON PHARMACEUTICALS, INC.-2016-18571

PATIENT

DRUGS (3)
  1. VIGAMOX [Concomitant]
     Active Substance: MOXIFLOXACIN HYDROCHLORIDE
     Indication: ANTIBIOTIC PROPHYLAXIS
  2. POVIDONE [Concomitant]
     Active Substance: POVIDONE
     Indication: PROPHYLAXIS
  3. EYLEA [Suspect]
     Active Substance: AFLIBERCEPT
     Indication: AGE-RELATED MACULAR DEGENERATION
     Dosage: INJECTION PRIOR TO THE EVENT (SINGLE ONE)
     Route: 031
     Dates: start: 20160527, end: 20160527

REACTIONS (6)
  - Multiple use of single-use product [Recovered/Resolved]
  - Drug interaction [Unknown]
  - Uveitis [Recovered/Resolved]
  - Eye operation complication [Unknown]
  - Vitritis [Recovered/Resolved]
  - Syringe issue [Unknown]

NARRATIVE: CASE EVENT DATE: 20160527
